FAERS Safety Report 6156702-2 (Version None)
Quarter: 2009Q2

REPORT INFORMATION
  Report Type: 
  Country: None (occurrence: None)
  Receive Date: 20090416
  Receipt Date: 20090409
  Transmission Date: 20091009
  Serious: Yes (Death)
  Sender: FDA-Public Use
  Company Number: US-TYCO HEALTHCARE/MALLINCKRODT-T200900855

PATIENT
  Sex: Male

DRUGS (1)
  1. OPTIRAY 300 [Suspect]
     Indication: COMPUTERISED TOMOGRAM
     Dosage: 100 ML, SINGLE
     Dates: start: 20090330, end: 20090330

REACTIONS (3)
  - CARDIAC ARREST [None]
  - FOAMING AT MOUTH [None]
  - NAUSEA [None]
